FAERS Safety Report 7689130-9 (Version None)
Quarter: 2011Q3

REPORT INFORMATION
  Report Type: 
  Country: None (occurrence: None)
  Receive Date: 20110817
  Receipt Date: 20110806
  Transmission Date: 20111222
  Serious: Yes (Other)
  Sender: FDA-Public Use
  Company Number: CA-JNJFOC-20110804746

PATIENT
  Sex: Female
  Weight: 60 kg

DRUGS (5)
  1. TYLENOL-500 [Concomitant]
     Indication: PREMEDICATION
     Route: 048
     Dates: start: 20110806
  2. REMICADE [Suspect]
     Route: 042
     Dates: start: 20110806, end: 20110806
  3. SOLU-CORTEF [Concomitant]
     Indication: PREMEDICATION
     Route: 042
     Dates: start: 20110806
  4. REMICADE [Suspect]
     Indication: COLITIS ULCERATIVE
     Route: 042
     Dates: start: 20110607
  5. BENADRYL [Concomitant]
     Indication: PREMEDICATION
     Route: 042
     Dates: start: 20110806

REACTIONS (6)
  - DYSPNOEA [None]
  - INFUSION RELATED REACTION [None]
  - DEPRESSION [None]
  - FEAR [None]
  - UTERINE LEIOMYOMA [None]
  - ANXIETY [None]
